FAERS Safety Report 23880561 (Version 1)
Quarter: 2024Q2

REPORT INFORMATION
  Report Type: Spontaneous
  Country: US (occurrence: None)
  Receive Date: 20240521
  Receipt Date: 20240521
  Transmission Date: 20240715
  Serious: No
  Sender: FDA-Public Use
  Company Number: None

PATIENT
  Age: 76 Year
  Sex: Male
  Weight: 107.1 kg

DRUGS (3)
  1. LENALIDOMIDE [Suspect]
     Active Substance: LENALIDOMIDE
     Indication: Plasma cell myeloma
     Dosage: OTHER FREQUENCY : DAILY FOR 21/28 DA;?
     Route: 048
     Dates: start: 20231214, end: 20231217
  2. BORTEZOMIB [Concomitant]
     Active Substance: BORTEZOMIB
     Dates: start: 20230309, end: 20240321
  3. DEXAMETHASONE [Concomitant]
     Active Substance: DEXAMETHASONE
     Dates: start: 20230309, end: 20240321

REACTIONS (1)
  - Rash [None]

NARRATIVE: CASE EVENT DATE: 20231217
